FAERS Safety Report 14664704 (Version 1)
Quarter: 2018Q1

REPORT INFORMATION
  Report Type: Spontaneous
  Country: GB (occurrence: GB)
  Receive Date: 20180321
  Receipt Date: 20180321
  Transmission Date: 20180509
  Serious: Yes (Other)
  Sender: FDA-Public Use
  Company Number: GB-TEVA-2018-GB-870517

PATIENT
  Age: 4 Year
  Sex: Female

DRUGS (1)
  1. METRONIDAZOLE. [Suspect]
     Active Substance: METRONIDAZOLE
     Indication: BACTERIAL INFECTION
     Dosage: 1 DOSAGE FORMS DAILY; AT NIGHT.
     Route: 067

REACTIONS (3)
  - Vaginal haematoma [Recovered/Resolved]
  - Product use issue [Unknown]
  - Haemorrhage [Recovered/Resolved]
